FAERS Safety Report 14243222 (Version 2)
Quarter: 2018Q1

REPORT INFORMATION
  Report Type: Spontaneous
  Country: US (occurrence: US)
  Receive Date: 20171201
  Receipt Date: 20180213
  Transmission Date: 20180508
  Serious: No
  Sender: FDA-Public Use
  Company Number: US-PFIZER INC-2017509086

PATIENT
  Age: 61 Year
  Sex: Female
  Weight: 68 kg

DRUGS (3)
  1. WATER BACTERIOSTATIC [Suspect]
     Active Substance: WATER
     Dosage: UNK (ICE WAS USED IN TOTAL X 8 SQ IN/CC TONS)
     Route: 058
     Dates: start: 20171121, end: 20171121
  2. WATER BACTERIOSTATIC [Suspect]
     Active Substance: WATER
     Indication: SKIN COSMETIC PROCEDURE
     Dosage: INJECTED WITH BOTOX
     Dates: start: 2015
  3. BOTOX [Concomitant]
     Active Substance: ONABOTULINUMTOXINA
     Indication: SKIN COSMETIC PROCEDURE
     Dosage: UNKNOWN DOSE; INJECTED INTO FOREHEAD WITH STERILE WATER
     Dates: start: 2015

REACTIONS (2)
  - Burning sensation [Recovering/Resolving]
  - Injection site pain [Recovered/Resolved with Sequelae]

NARRATIVE: CASE EVENT DATE: 20171121
